FAERS Safety Report 23994120 (Version 2)
Quarter: 2025Q1

REPORT INFORMATION
  Report Type: Spontaneous
  Country: DE (occurrence: DE)
  Receive Date: 20240620
  Receipt Date: 20250311
  Transmission Date: 20250409
  Serious: Yes (Life-Threatening, Hospitalization, Other)
  Sender: RANBAXY
  Company Number: DE-EMA-DD-20240325-7482677-050106

PATIENT
  Age: 43 Year
  Sex: Female
  Weight: 61 kg

DRUGS (6)
  1. LEVETIRACETAM [Suspect]
     Active Substance: LEVETIRACETAM
     Indication: Metastases to central nervous system
     Dosage: 1000 MG, 2X/DAY
     Route: 065
     Dates: start: 202110
  2. TUKYSA [Suspect]
     Active Substance: TUCATINIB
     Indication: Breast cancer metastatic
     Dosage: 300 MG, 2X/DAY
     Route: 048
     Dates: start: 20231106, end: 20240202
  3. CAPECITABINE [Suspect]
     Active Substance: CAPECITABINE
     Indication: Breast cancer
     Dosage: 1650 MG, 2X/DAY
     Route: 065
     Dates: start: 20231106, end: 20240202
  4. TRASTUZUMAB [Suspect]
     Active Substance: TRASTUZUMAB
     Indication: Breast cancer metastatic
     Route: 065
     Dates: start: 20230620, end: 20240130
  5. GRANISETRONE [Concomitant]
     Indication: Nausea
     Dosage: 3.1 MG / 24HRS, EVERY 5 DAYS, DURING CAPECITABINE INTAKE
     Route: 065
     Dates: start: 202311
  6. PANTOPRAZOLE [Concomitant]
     Active Substance: PANTOPRAZOLE
     Indication: Product used for unknown indication
     Dosage: 20 MG, 1X/DAY
     Route: 065

REACTIONS (5)
  - Circulatory collapse [Recovered/Resolved]
  - Cardiac arrest [Recovered/Resolved]
  - Ventricular fibrillation [Recovered/Resolved]
  - Psychological trauma [Not Recovered/Not Resolved]
  - Ejection fraction decreased [Not Recovered/Not Resolved]

NARRATIVE: CASE EVENT DATE: 20240202
